FAERS Safety Report 13744186 (Version 1)
Quarter: 2017Q3

REPORT INFORMATION
  Report Type: Spontaneous
  Country: US (occurrence: US)
  Receive Date: 20170712
  Receipt Date: 20170712
  Transmission Date: 20171127
  Serious: No
  Sender: FDA-Public Use
  Company Number: US-BAUSCH-BL-2016-021137

PATIENT
  Age: 15 Year
  Sex: Male

DRUGS (2)
  1. ACZONE [Concomitant]
     Active Substance: DAPSONE
     Indication: ACNE
  2. LOCOID [Suspect]
     Active Substance: HYDROCORTISONE BUTYRATE
     Indication: PRURITUS
     Route: 061
     Dates: start: 201606

REACTIONS (1)
  - Drug ineffective [Unknown]
